FAERS Safety Report 15979153 (Version 2)
Quarter: 2019Q4

REPORT INFORMATION
  Report Type: Spontaneous
  Country: JP (occurrence: JP)
  Receive Date: 20190219
  Receipt Date: 20191104
  Transmission Date: 20200122
  Serious: Yes (Life-Threatening, Other)
  Sender: FDA-Public Use
  Company Number: JP-ACTELION-A-CH2018-165142

PATIENT
  Age: 69 Year
  Sex: Female
  Weight: 49 kg

DRUGS (21)
  1. WARFARIN [Concomitant]
     Active Substance: WARFARIN
  2. CRESTOR [Concomitant]
     Active Substance: ROSUVASTATIN CALCIUM
     Indication: HYPERLIPIDAEMIA
     Dosage: 5 MG, QD
  3. ZINC. [Concomitant]
     Active Substance: ZINC
     Indication: HYPOZINCAEMIA
     Dosage: 100 MG, QD
  4. LOXOPROFEN [Concomitant]
     Active Substance: LOXOPROFEN
     Indication: SCLERODERMA
     Dosage: UNK
  5. UPTRAVI [Suspect]
     Active Substance: SELEXIPAG
     Indication: PULMONARY ARTERIAL HYPERTENSION
     Dosage: 0.2 MG, BID
     Route: 048
     Dates: start: 20171109, end: 20171127
  6. MYSLEE [Concomitant]
     Active Substance: ZOLPIDEM TARTRATE
     Indication: INSOMNIA
     Dosage: 10 MG, QD
  7. VERAPAMIL [Concomitant]
     Active Substance: VERAPAMIL HYDROCHLORIDE
     Indication: AORTIC VALVE STENOSIS
     Dosage: 80 MG, QD
  8. SUNRYTHM [Concomitant]
     Active Substance: PILSICAINIDE HYDROCHLORIDE
     Indication: AORTIC VALVE STENOSIS
     Dosage: 100 MG, QD
  9. CARNACULIN [Concomitant]
     Active Substance: KALLIDINOGENASE
     Indication: AORTIC VALVE STENOSIS
     Dosage: 100 MG, QD
  10. FERROUS CITRATE NA [Concomitant]
     Active Substance: SODIUM FERROUS CITRATE
     Indication: IRON DEFICIENCY ANAEMIA
     Dosage: 150 MG, QD
  11. OPSUMIT [Concomitant]
     Active Substance: MACITENTAN
     Indication: PULMONARY ARTERIAL HYPERTENSION
     Dosage: 5 MG, QD
  12. FIBLAST [Concomitant]
     Dosage: UNK
     Dates: start: 20171102
  13. AZOSEMIDE [Concomitant]
     Active Substance: AZOSEMIDE
     Indication: AORTIC VALVE STENOSIS
     Dosage: 60 MG, QD
  14. NICORANDIL [Concomitant]
     Active Substance: NICORANDIL
     Indication: AORTIC VALVE STENOSIS
     Dosage: 10 MG, QD
  15. CLOPIDROGEL SANDOZ [Concomitant]
     Active Substance: CLOPIDOGREL BISULFATE
     Indication: AORTIC VALVE STENOSIS
     Dosage: 75 MG, QD
  16. CALONAL [Concomitant]
     Active Substance: ACETAMINOPHEN
     Dosage: 1500 MG, QD
  17. THYRADIN S [Concomitant]
     Active Substance: LEVOTHYROXINE SODIUM
     Indication: HYPOTHYROIDISM
     Dosage: 50 MCG, QD
  18. TAKECAB [Concomitant]
     Active Substance: VONOPRAZAN FUMURATE
     Indication: GASTROOESOPHAGEAL REFLUX DISEASE
     Dosage: 10 MG, QD
  19. UPTRAVI [Suspect]
     Active Substance: SELEXIPAG
     Dosage: 0.2 MG, QD
     Route: 048
     Dates: start: 20171102, end: 20171108
  20. CARVEDILOL. [Concomitant]
     Active Substance: CARVEDILOL
     Indication: AORTIC VALVE STENOSIS
     Dosage: 2.5 MG, QD
  21. SARPOGRELATE HCL [Concomitant]
     Indication: THROMBOANGIITIS OBLITERANS
     Dosage: 200 MG, QD

REACTIONS (4)
  - Diarrhoea [Recovered/Resolved with Sequelae]
  - Malnutrition [Recovered/Resolved]
  - Delirium [Recovered/Resolved]
  - Decreased appetite [Unknown]

NARRATIVE: CASE EVENT DATE: 20171127
